FAERS Safety Report 9818608 (Version 3)
Quarter: 2014Q1

REPORT INFORMATION
  Report Type: Report from Study
  Country: CA (occurrence: CA)
  Receive Date: 20140115
  Receipt Date: 20140224
  Transmission Date: 20141002
  Serious: Yes (Other)
  Sender: FDA-Public Use
  Company Number: PHHY2013CA033265

PATIENT
  Age: 74 Year
  Sex: Male

DRUGS (13)
  1. GLEEVEC [Suspect]
     Indication: CHRONIC MYELOID LEUKAEMIA
     Dosage: 400 MG, QD
     Route: 048
     Dates: start: 200309
  2. GLEEVEC [Suspect]
     Dosage: 400 MG, QD
     Route: 048
     Dates: start: 20040811
  3. ARTECHOL [Concomitant]
     Indication: HEPATIC FUNCTION ABNORMAL
     Dosage: UNK UKN, DAILY
  4. VACCINES [Concomitant]
     Dosage: UNK UKN, UNK
  5. ANTIHYPERTENSIVES [Concomitant]
     Indication: BLOOD PRESSURE ABNORMAL
     Dosage: UNK UKN, UNK
  6. SERUM LIPID REDUCING AGENTS [Concomitant]
     Indication: BLOOD CHOLESTEROL ABNORMAL
     Dosage: UNK UKN, UNK
  7. ATIVAN [Concomitant]
     Dosage: 2 MG, PRN
     Route: 048
  8. LIPITOR [Concomitant]
     Dosage: 20 MG, UNK
     Route: 048
  9. METOPROLOL [Concomitant]
     Dosage: 25 MG, BID
     Route: 048
  10. RHOVANE [Concomitant]
     Dosage: 7.5 MG, PRN
     Route: 048
  11. ASAPHEN [Concomitant]
     Dosage: 80 MG, UNK
     Route: 048
  12. CALCIUM + VIT D [Concomitant]
     Dosage: 500 MG, UNK
     Route: 048
  13. PREVACID [Concomitant]
     Dosage: 30 MG, UNK
     Route: 048

REACTIONS (21)
  - Gastrointestinal carcinoma [Unknown]
  - Diarrhoea [Unknown]
  - Second primary malignancy [Unknown]
  - Rectal cancer [Not Recovered/Not Resolved]
  - Large intestinal ulcer [Unknown]
  - Myocardial infarction [Unknown]
  - Solar lentigo [Unknown]
  - Blood calcium decreased [Unknown]
  - Bone disorder [Unknown]
  - Nasal congestion [Unknown]
  - Haematochezia [Unknown]
  - Frequent bowel movements [Unknown]
  - Flatulence [Unknown]
  - Influenza [Unknown]
  - Pain in extremity [Recovering/Resolving]
  - Muscle spasms [Unknown]
  - Renal pain [Unknown]
  - Myalgia [Unknown]
  - Muscular weakness [Recovering/Resolving]
  - Malaise [Unknown]
  - Insomnia [Unknown]
